FAERS Safety Report 5037619-3 (Version None)
Quarter: 2006Q2

REPORT INFORMATION
  Report Type: 
  Country: None (occurrence: None)
  Receive Date: 20060601
  Receipt Date: 20060210
  Transmission Date: 20061013
  Serious: No
  Sender: FDA-Public Use
  Company Number: 2006PV008475

PATIENT
  Sex: Male

DRUGS (1)
  1. BYETTA [Suspect]
     Dosage: 5 MCG;BID;SC
     Route: 058

REACTIONS (12)
  - CONDITION AGGRAVATED [None]
  - DECREASED APPETITE [None]
  - DIZZINESS [None]
  - DYSGEUSIA [None]
  - ENERGY INCREASED [None]
  - FREQUENT BOWEL MOVEMENTS [None]
  - JOINT STIFFNESS [None]
  - MOOD SWINGS [None]
  - MUSCLE SPASMS [None]
  - MUSCULOSKELETAL STIFFNESS [None]
  - NAUSEA [None]
  - THERAPEUTIC RESPONSE UNEXPECTED [None]
